FAERS Safety Report 5010431-7 (Version None)
Quarter: 2006Q2

REPORT INFORMATION
  Report Type: 
  Country: None (occurrence: None)
  Receive Date: 20060523
  Receipt Date: 20060511
  Transmission Date: 20061013
  Serious: Yes (Other)
  Sender: FDA-Public Use
  Company Number: 2006063437

PATIENT
  Age: 79 Year
  Sex: Male

DRUGS (3)
  1. AMLODIPINE [Suspect]
     Indication: HYPERTENSION
     Dosage: 5 MG (5 MG, 1 IN 1 D), ORAL
     Route: 048
     Dates: start: 20050725, end: 20051229
  2. POLLAKISU (OXYBUTIN HYDROCHLORIDE) [Suspect]
     Indication: NEUROGENIC BLADDER
     Dosage: 6 MG (2 MG, 3 IN 1 D), ORAL
     Route: 048
     Dates: start: 20051125, end: 20051128
  3. HARNAL (TAMSULOSIN HYDROCHLORIDE) [Suspect]
     Indication: BENIGN PROSTATIC HYPERPLASIA
     Dosage: 0.2 MG (0.2 MG, 1 IN 1 D), ORAL
     Route: 048
     Dates: start: 20051125, end: 20051128

REACTIONS (12)
  - BENIGN PROSTATIC HYPERPLASIA [None]
  - CONDITION AGGRAVATED [None]
  - DERMATITIS EXFOLIATIVE [None]
  - ECZEMA ASTEATOTIC [None]
  - FACE OEDEMA [None]
  - FLUSHING [None]
  - NEUROGENIC BLADDER [None]
  - PIGMENTATION DISORDER [None]
  - SCAR [None]
  - SKIN EXFOLIATION [None]
  - TOXIC SKIN ERUPTION [None]
  - URTICARIA [None]
